FAERS Safety Report 22240294 (Version 1)
Quarter: 2023Q2

REPORT INFORMATION
  Report Type: Spontaneous
  Country: US (occurrence: US)
  Receive Date: 20230421
  Receipt Date: 20230421
  Transmission Date: 20230721
  Serious: No
  Sender: FDA-Public Use
  Company Number: US-ALLERGAN-2215090US

PATIENT
  Sex: Female

DRUGS (2)
  1. RESTASIS [Suspect]
     Active Substance: CYCLOSPORINE
     Indication: Dry eye
     Dosage: UNK
  2. REFRESH PLUS [Suspect]
     Active Substance: CARBOXYMETHYLCELLULOSE SODIUM
     Indication: Dry eye
     Dosage: UNK

REACTIONS (1)
  - Eye irritation [Not Recovered/Not Resolved]
